FAERS Safety Report 19317648 (Version 2)
Quarter: 2021Q2

REPORT INFORMATION
  Report Type: Spontaneous
  Country: US (occurrence: US)
  Receive Date: 20210527
  Receipt Date: 20210621
  Transmission Date: 20210717
  Serious: Yes (Disabling, Other)
  Sender: FDA-Public Use
  Company Number: US-JNJFOC-20210538193

PATIENT
  Age: 55 Year
  Sex: Male

DRUGS (15)
  1. ALEMTUZUMAB [Suspect]
     Active Substance: ALEMTUZUMAB
     Route: 042
     Dates: start: 20170404, end: 20170604
  2. BISOPROLOL [Concomitant]
     Active Substance: BISOPROLOL
     Indication: BLOOD PRESSURE MEASUREMENT
  3. AMLODIPINE [Concomitant]
     Active Substance: AMLODIPINE BESYLATE
     Indication: BLOOD PRESSURE MEASUREMENT
  4. BISELECT [BISOPROLOL FUMARATE;HYDROCHLOROTHIAZIDE] [Concomitant]
  5. CENTRUM SILVER [ASCORBIC ACID;CALCIUM;MINERALS NOS;RETINOL;TOCOPHERYL [Concomitant]
  6. ALFUZOSIN [Concomitant]
     Active Substance: ALFUZOSIN
  7. VITAMIN D [ERGOCALCIFEROL] [Concomitant]
     Active Substance: ERGOCALCIFEROL
  8. DULOXETINE HYDROCHLORIDE. [Concomitant]
     Active Substance: DULOXETINE HYDROCHLORIDE
  9. FAMPRIDINE [Concomitant]
     Active Substance: DALFAMPRIDINE
  10. AMLODIPINE [Concomitant]
     Active Substance: AMLODIPINE BESYLATE
  11. GABAPENTIN. [Concomitant]
     Active Substance: GABAPENTIN
  12. XARELTO [Suspect]
     Active Substance: RIVAROXABAN
     Indication: PRODUCT USED FOR UNKNOWN INDICATION
     Route: 048
  13. ALEMTUZUMAB [Suspect]
     Active Substance: ALEMTUZUMAB
     Indication: MULTIPLE SCLEROSIS
     Route: 042
     Dates: start: 20160321, end: 20160324
  14. ACETYLSALICYLIC ACID [Concomitant]
     Active Substance: ASPIRIN
  15. BACLOFEN. [Concomitant]
     Active Substance: BACLOFEN

REACTIONS (21)
  - Decreased immune responsiveness [Unknown]
  - Phlebitis [Not Recovered/Not Resolved]
  - Chest pain [Recovered/Resolved]
  - Gait disturbance [Not Recovered/Not Resolved]
  - Asthenia [Recovered/Resolved]
  - Blood urine present [Recovered/Resolved]
  - Hyperhidrosis [Recovered/Resolved]
  - Back pain [Unknown]
  - Neuropathy peripheral [Not Recovered/Not Resolved]
  - Memory impairment [Not Recovered/Not Resolved]
  - Muscle strain [Recovered/Resolved]
  - Migraine [Unknown]
  - Muscular weakness [Unknown]
  - Tendon discomfort [Unknown]
  - Cough [Unknown]
  - Thrombosis [Unknown]
  - White blood cell count decreased [Not Recovered/Not Resolved]
  - Nasal congestion [Unknown]
  - Urinary tract infection [Not Recovered/Not Resolved]
  - Insomnia [Recovered/Resolved]
  - Rash [Recovered/Resolved]

NARRATIVE: CASE EVENT DATE: 2016
